FAERS Safety Report 6873194-6 (Version None)
Quarter: 2010Q3

REPORT INFORMATION
  Report Type: 
  Country: None (occurrence: None)
  Receive Date: 20100723
  Receipt Date: 20090107
  Transmission Date: 20110219
  Serious: Yes (Other)
  Sender: FDA-Public Use
  Company Number: US-PFIZER INC-2009153145

PATIENT
  Sex: Male

DRUGS (1)
  1. CHANTIX [Suspect]
     Indication: SMOKING CESSATION THERAPY
     Dosage: 1 MG, 1X/DAY
     Route: 048
     Dates: start: 20060101, end: 20080101

REACTIONS (6)
  - ANXIETY [None]
  - APATHY [None]
  - DEPRESSION [None]
  - NEUROSIS [None]
  - PSYCHIATRIC SYMPTOM [None]
  - SUICIDAL BEHAVIOUR [None]
